FAERS Safety Report 4918525-9 (Version None)
Quarter: 2006Q1

REPORT INFORMATION
  Report Type: 
  Country: None (occurrence: None)
  Receive Date: 20060222
  Receipt Date: 20060209
  Transmission Date: 20060701
  Serious: Yes (Other)
  Sender: FDA-Public Use
  Company Number: CH-AVENTIS-200611287GDDC

PATIENT
  Age: 32 Year
  Sex: Female

DRUGS (3)
  1. FLAGYL [Suspect]
     Indication: HELICOBACTER INFECTION
     Route: 048
     Dates: start: 20051226, end: 20051231
  2. KLACID [Suspect]
     Indication: HELICOBACTER INFECTION
     Route: 048
     Dates: start: 20051226, end: 20051231
  3. PANTOZOL [Suspect]
     Indication: HELICOBACTER INFECTION
     Route: 048
     Dates: start: 20051226, end: 20051231

REACTIONS (3)
  - ANGIONEUROTIC OEDEMA [None]
  - APHTHOUS STOMATITIS [None]
  - DYSPNOEA [None]
